FAERS Safety Report 25927427 (Version 1)
Quarter: 2025Q4

REPORT INFORMATION
  Report Type: Spontaneous
  Country: JP (occurrence: JP)
  Receive Date: 20251015
  Receipt Date: 20251015
  Transmission Date: 20260118
  Serious: Yes (Death, Other)
  Sender: NOVARTIS
  Company Number: JP-002147023-NVSJ2025JP009911

PATIENT
  Age: 83 Year
  Sex: Female

DRUGS (2)
  1. SCEMBLIX [Suspect]
     Active Substance: ASCIMINIB HYDROCHLORIDE
     Indication: Chronic myeloid leukaemia transformation
     Dosage: 80 MG
     Route: 048
  2. SCEMBLIX [Suspect]
     Active Substance: ASCIMINIB HYDROCHLORIDE
     Dosage: 40 MG
     Route: 048

REACTIONS (5)
  - Chronic myeloid leukaemia recurrent [Fatal]
  - Chronic myeloid leukaemia transformation [Fatal]
  - Malignant neoplasm progression [Fatal]
  - Neutrophil count decreased [Fatal]
  - Off label use [Unknown]
